FAERS Safety Report 15353991 (Version 2)
Quarter: 2018Q3

REPORT INFORMATION
  Report Type: Spontaneous
  Country: IT (occurrence: IT)
  Receive Date: 20180906
  Receipt Date: 20180911
  Transmission Date: 20181010
  Serious: Yes (Other)
  Sender: FDA-Public Use
  Company Number: IT-BAXTER-2018BAX022912

PATIENT

DRUGS (2)
  1. SOLUZIONE PER DIALISI PERITONEALE BAXTER [Suspect]
     Active Substance: CALCIUM CHLORIDE\DEXTROSE\MAGNESIUM CHLORIDE\SODIUM CHLORIDE\SODIUM LACTATE
     Indication: PERITONEAL DIALYSIS
     Route: 033
  2. FIXIONEAL [Suspect]
     Active Substance: CALCIUM\DEXTROSE\MAGNESIUM\SODIUM BICARBONATE\SODIUM CHLORIDE\SODIUM LACTATE
     Indication: PERITONEAL DIALYSIS
     Route: 033

REACTIONS (3)
  - Dysentery [Unknown]
  - Diarrhoea [Unknown]
  - Multimorbidity [Unknown]
